FAERS Safety Report 4628625-9 (Version None)
Quarter: 2005Q2

REPORT INFORMATION
  Report Type: 
  Country: None (occurrence: None)
  Receive Date: 20050404
  Receipt Date: 20050323
  Transmission Date: 20051028
  Serious: Yes (Other)
  Sender: FDA-Public Use
  Company Number: 05-166

PATIENT
  Age: 27 Year
  Sex: Male

DRUGS (3)
  1. ACETAMINOPHEN [Suspect]
     Dosage: 8 G, ORAL
     Route: 048
  2. DICLOFENAC SODIUM [Suspect]
     Dosage: 1 G
  3. IBUPROFEN [Suspect]
     Dosage: 3.6 G

REACTIONS (3)
  - HEPATOCELLULAR DAMAGE [None]
  - INTENTIONAL MISUSE [None]
  - RENAL FAILURE [None]
